FAERS Safety Report 8396958-9 (Version None)
Quarter: 2012Q2

REPORT INFORMATION
  Report Type: 
  Country: None (occurrence: None)
  Receive Date: 20120530
  Receipt Date: 20120517
  Transmission Date: 20120825
  Serious: No
  Sender: FDA-Public Use
  Company Number: US-ASTRAZENECA-2012SE31804

PATIENT
  Age: 46 Year
  Sex: Male
  Weight: 106.6 kg

DRUGS (6)
  1. NEXIUM [Suspect]
     Indication: EROSIVE OESOPHAGITIS
     Route: 048
  2. NEXIUM [Suspect]
     Indication: GASTROOESOPHAGEAL REFLUX DISEASE
     Route: 048
  3. ANTACIDS [Concomitant]
  4. TAGAMET [Concomitant]
  5. ALBUTEROL [Concomitant]
  6. NEXIUM [Suspect]
     Indication: BARRETT'S OESOPHAGUS
     Route: 048

REACTIONS (5)
  - INTENTIONAL DRUG MISUSE [None]
  - SLEEP DISORDER DUE TO A GENERAL MEDICAL CONDITION [None]
  - DYSPNOEA [None]
  - DYSPEPSIA [None]
  - OFF LABEL USE [None]
